FAERS Safety Report 9489470 (Version 1)
Quarter: 2013Q3

REPORT INFORMATION
  Report Type: Spontaneous
  Country: GB (occurrence: GB)
  Receive Date: 20130829
  Receipt Date: 20130829
  Transmission Date: 20140515
  Serious: Yes (Other)
  Sender: FDA-Public Use
  Company Number: PHHY2013GB091442

PATIENT
  Age: 47 Year
  Sex: Male
  Weight: 89 kg

DRUGS (8)
  1. PHENOXYMETHYLPENICILLIN [Suspect]
     Dates: start: 20130813
  2. LEVEMIR [Concomitant]
     Dates: start: 20130310
  3. NOVORAPID [Concomitant]
     Dates: start: 20130310
  4. CLOMIPRAMINE [Concomitant]
     Dates: start: 20130419
  5. NEFOPAM [Concomitant]
     Dosage: UNK
     Dates: start: 20130419
  6. CETIRIZINE [Concomitant]
     Dates: start: 20130507
  7. ROSUVASTATIN [Concomitant]
     Dates: start: 20130507
  8. EURAX [Concomitant]
     Dates: start: 20130529

REACTIONS (1)
  - Dependence [Unknown]
